FAERS Safety Report 8391655-8 (Version None)
Quarter: 2012Q2

REPORT INFORMATION
  Report Type: 
  Country: None (occurrence: None)
  Receive Date: 20120529
  Receipt Date: 20120517
  Transmission Date: 20120825
  Serious: Yes (Other)
  Sender: FDA-Public Use
  Company Number: US-JNJFOC-20120516727

PATIENT
  Age: 6 Year
  Sex: Male
  Weight: 20.41 kg

DRUGS (3)
  1. IMODIUM A-D [Suspect]
     Route: 048
  2. IMODIUM A-D [Suspect]
     Indication: DIARRHOEA
     Route: 048
     Dates: start: 20120514, end: 20120514
  3. MULTIVITAMIN [Concomitant]
     Indication: NUTRITIONAL SUPPORT
     Route: 065
     Dates: start: 20120401

REACTIONS (5)
  - AURICULAR SWELLING [None]
  - LIP SWELLING [None]
  - SKIN REACTION [None]
  - DIARRHOEA [None]
  - EXPIRED DRUG ADMINISTERED [None]
